FAERS Safety Report 17985401 (Version 3)
Quarter: 2020Q4

REPORT INFORMATION
  Report Type: Spontaneous
  Country: US (occurrence: US)
  Receive Date: 20200706
  Receipt Date: 20201013
  Transmission Date: 20210113
  Serious: Yes (Other)
  Sender: FDA-Public Use
  Company Number: US-BAYER-2020-134004

PATIENT
  Sex: Female

DRUGS (3)
  1. KOVALTRY [Suspect]
     Active Substance: ANTIHEMOPHILIC FACTOR, HUMAN RECOMBINANT
     Indication: FACTOR VIII DEFICIENCY
     Dosage: 4000 U, BIW, AND AS NEEDED FOR BLEEDS AS DIRECTED (UP TO ONCE WEEKLY)
     Route: 042
     Dates: start: 201905
  2. KOVALTRY [Suspect]
     Active Substance: ANTIHEMOPHILIC FACTOR, HUMAN RECOMBINANT
     Indication: FACTOR VIII DEFICIENCY
     Dosage: 5 DF, ONCE, FOR TREATMENT OF ACTIVE BLEEDS IN LEFT ELBOW AND GROIN
     Route: 042
  3. VICODIN [Concomitant]
     Active Substance: ACETAMINOPHEN\HYDROCODONE BITARTRATE

REACTIONS (4)
  - Haematoma [Not Recovered/Not Resolved]
  - Haemarthrosis [Unknown]
  - Haemarthrosis [Not Recovered/Not Resolved]
  - Drug ineffective [None]
